FAERS Safety Report 5046726-0 (Version None)
Quarter: 2006Q2

REPORT INFORMATION
  Report Type: 
  Country: None (occurrence: None)
  Receive Date: 20060601
  Receipt Date: 20060314
  Transmission Date: 20061013
  Serious: No
  Sender: FDA-Public Use
  Company Number: 2006PV010239

PATIENT
  Age: 49 Year
  Sex: Male
  Weight: 119.7496 kg

DRUGS (7)
  1. BYETTA [Suspect]
     Indication: DIABETES MELLITUS NON-INSULIN-DEPENDENT
     Dosage: 5 MCG;BID;SC
     Route: 058
     Dates: start: 20060314
  2. GLUCOVANCE [Concomitant]
  3. AVANDIA [Concomitant]
  4. CRESTOR [Concomitant]
  5. MICARDIS [Concomitant]
  6. FLUCONAZOLE [Concomitant]
  7. IBUPROFEN [Concomitant]

REACTIONS (1)
  - INJECTION SITE BRUISING [None]
